FAERS Safety Report 15399188 (Version 2)
Quarter: 2018Q3

REPORT INFORMATION
  Report Type: Report from Study
  Country: US (occurrence: US)
  Receive Date: 20180918
  Receipt Date: 20180926
  Transmission Date: 20181010
  Serious: Yes (Other)
  Sender: FDA-Public Use
  Company Number: US-GILEAD-2018-0352263

PATIENT
  Age: 45 Year
  Sex: Male

DRUGS (5)
  1. UPTRAVI [Concomitant]
     Active Substance: SELEXIPAG
     Dosage: 800 UG, BID
     Route: 065
     Dates: start: 20180803, end: 20180809
  2. UPTRAVI [Concomitant]
     Active Substance: SELEXIPAG
     Dosage: 400 UG, BID
     Route: 065
  3. AMBRISENTAN [Suspect]
     Active Substance: AMBRISENTAN
     Indication: PRODUCT USED FOR UNKNOWN INDICATION
     Dosage: 10 MG, QD
     Route: 065
     Dates: start: 20170804
  4. UPTRAVI [Concomitant]
     Active Substance: SELEXIPAG
     Dosage: 1000 UG, BID
     Route: 065
     Dates: start: 20180810
  5. ADEMPAS [Concomitant]
     Active Substance: RIOCIGUAT

REACTIONS (5)
  - Pain in jaw [Recovering/Resolving]
  - Vomiting [Not Recovered/Not Resolved]
  - Transplant evaluation [Unknown]
  - Pulmonary arterial hypertension [Not Recovered/Not Resolved]
  - Headache [Not Recovered/Not Resolved]
